FAERS Safety Report 7799321-4 (Version None)
Quarter: 2011Q4

REPORT INFORMATION
  Report Type: 
  Country: None (occurrence: None)
  Receive Date: 20111006
  Receipt Date: 20110927
  Transmission Date: 20120403
  Serious: Yes (Hospitalization)
  Sender: FDA-Public Use
  Company Number: PHHY2011IT85740

PATIENT
  Age: 58 Year
  Sex: Male
  Weight: 130 kg

DRUGS (5)
  1. AMOXICILLIN AND CLAVULANATE POTASSIUM [Suspect]
     Indication: OROPHARYNGEAL PAIN
     Dosage: 1 G, UNK
  2. AMOXICILLIN AND CLAVULANATE POTASSIUM [Suspect]
     Dosage: 1 G, UNK
  3. CANDESARTAN CILEXETIL AND HYDROCHLOROTHIAZIDE [Concomitant]
  4. AVANDAMET [Concomitant]
  5. ZERINOL [Concomitant]

REACTIONS (18)
  - HYPOTENSION [None]
  - ANGIOEDEMA [None]
  - FLUSHING [None]
  - CORONARY ARTERY OCCLUSION [None]
  - VENTRICULAR FIBRILLATION [None]
  - NERVOUS SYSTEM DISORDER [None]
  - LEFT VENTRICULAR HYPERTROPHY [None]
  - ANAPHYLACTIC REACTION [None]
  - URTICARIA [None]
  - FEELING HOT [None]
  - RESPIRATORY FAILURE [None]
  - ARTERIOSCLEROSIS CORONARY ARTERY [None]
  - RENAL FAILURE ACUTE [None]
  - ACUTE MYOCARDIAL INFARCTION [None]
  - CHEST PAIN [None]
  - ABDOMINAL PAIN UPPER [None]
  - ASTHENIA [None]
  - TACHYCARDIA [None]
